FAERS Safety Report 7987830-4 (Version None)
Quarter: 2011Q4

REPORT INFORMATION
  Report Type: 
  Country: None (occurrence: None)
  Receive Date: 20111216
  Receipt Date: 20110506
  Transmission Date: 20120403
  Serious: No
  Sender: FDA-Public Use
  Company Number: US-BRISTOL-MYERS SQUIBB COMPANY-15724016

PATIENT
  Age: 54 Year
  Sex: Female

DRUGS (3)
  1. WELLBUTRIN [Concomitant]
  2. ABILIFY [Suspect]
     Dosage: INITIALLY GIVEN DOSE 5MG,THEN REDUCED TO 2.5MG
     Dates: start: 20110107
  3. SEROQUEL [Concomitant]

REACTIONS (1)
  - TREMOR [None]
